FAERS Safety Report 17183966 (Version 1)
Quarter: 2019Q4

REPORT INFORMATION
  Report Type: Spontaneous
  Country: CA (occurrence: CA)
  Receive Date: 20191219
  Receipt Date: 20191219
  Transmission Date: 20200122
  Serious: Yes (Hospitalization)
  Sender: FDA-Public Use
  Company Number: None

PATIENT
  Age: 28 Year
  Sex: Female
  Weight: 81 kg

DRUGS (2)
  1. LATUDA [Suspect]
     Active Substance: LURASIDONE HYDROCHLORIDE
     Indication: BIPOLAR I DISORDER
  2. CARBAMAZEPINE. [Concomitant]
     Active Substance: CARBAMAZEPINE

REACTIONS (9)
  - Decreased appetite [None]
  - Pharyngeal swelling [None]
  - Muscle disorder [None]
  - Immunosuppression [None]
  - Dyspnoea [None]
  - Oropharyngeal pain [None]
  - Cough [None]
  - Rhinorrhoea [None]
  - Night sweats [None]

NARRATIVE: CASE EVENT DATE: 20191218
